FAERS Safety Report 6907130-0 (Version None)
Quarter: 2010Q3

REPORT INFORMATION
  Report Type: 
  Country: None (occurrence: None)
  Receive Date: 20100804
  Receipt Date: 20081215
  Transmission Date: 20110219
  Serious: No
  Sender: FDA-Public Use
  Company Number: US-PFIZER INC-2005067342

PATIENT
  Sex: Male
  Weight: 108.9 kg

DRUGS (3)
  1. NARDIL [Suspect]
     Dosage: 105 MG, 1X/DAY
     Route: 048
     Dates: start: 19930301
  2. NEURONTIN [Concomitant]
     Route: 048
  3. DIAZEPAM [Concomitant]
     Route: 048

REACTIONS (5)
  - ASTHENIA [None]
  - DRUG INEFFECTIVE [None]
  - FATIGUE [None]
  - FEELING ABNORMAL [None]
  - HEADACHE [None]
